FAERS Safety Report 4412948-2 (Version None)
Quarter: 2004Q3

REPORT INFORMATION
  Report Type: 
  Country: None (occurrence: None)
  Receive Date: 20040802
  Receipt Date: 20030908
  Transmission Date: 20050211
  Serious: No
  Sender: FDA-Public Use
  Company Number: US-GLAXOSMITHKLINE-A0425051A

PATIENT
  Age: 2 Year
  Sex: Male

DRUGS (2)
  1. ZANTAC [Suspect]
     Dosage: 2ML TWICE PER DAY
     Route: 048
     Dates: start: 20030826, end: 20030902
  2. MAALOX [Concomitant]

REACTIONS (5)
  - ABDOMINAL DISTENSION [None]
  - BALANCE DISORDER [None]
  - DRUG INEFFECTIVE [None]
  - OVERDOSE [None]
  - VOMITING [None]
